FAERS Safety Report 14901988 (Version 1)
Quarter: 2018Q2

REPORT INFORMATION
  Report Type: Report from Study
  Country: ES (occurrence: ES)
  Receive Date: 20180516
  Receipt Date: 20180516
  Transmission Date: 20180711
  Serious: Yes (Hospitalization)
  Sender: FDA-Public Use
  Company Number: ES-TEVA-2018-ES-893363

PATIENT
  Age: 77 Year
  Sex: Female

DRUGS (6)
  1. AMLODIPINE [Suspect]
     Active Substance: AMLODIPINE BESYLATE
     Indication: HYPERTENSION
     Dosage: 5 MILLIGRAM DAILY;
     Route: 048
     Dates: start: 20160520, end: 20160922
  2. ATORVASTATIN (7400A) [Concomitant]
     Indication: HYPERLIPIDAEMIA
     Dosage: 40 MILLIGRAM DAILY;
     Route: 048
     Dates: end: 20160922
  3. DIANBEN 850 MG FILM-COATED TABLETS, 50 TABLETS [Concomitant]
     Indication: TYPE 2 DIABETES MELLITUS
     Dosage: 1700 MILLIGRAM DAILY;
     Route: 048
     Dates: end: 20160920
  4. LOSARTAN/HYDROCHLOROTHIAZIDE STADA 100/25 MG FILM-COATED TABLETS EFG, [Interacting]
     Active Substance: HYDROCHLOROTHIAZIDE\LOSARTAN POTASSIUM
     Indication: HYPERTENSION
     Dosage: 1 DOSAGE FORMS DAILY;
     Route: 048
     Dates: start: 20160523, end: 20160922
  5. OMEPRAZOL (2141A) [Concomitant]
     Active Substance: OMEPRAZOLE
     Indication: PROPHYLAXIS AGAINST GASTROINTESTINAL ULCER
     Dosage: 40 MILLIGRAM DAILY;
     Route: 048
     Dates: end: 20160922
  6. NOLOTIL (METAMIZOLE MAGNESIUM) [Interacting]
     Active Substance: METAMIZOLE MAGNESIUM
     Dosage: 2300 MILLIGRAM DAILY;
     Route: 048
     Dates: start: 201608, end: 20160922

REACTIONS (2)
  - Acute kidney injury [Recovering/Resolving]
  - Drug interaction [Unknown]

NARRATIVE: CASE EVENT DATE: 20160922
